FAERS Safety Report 4689618-9 (Version None)
Quarter: 2005Q2

REPORT INFORMATION
  Report Type: 
  Country: None (occurrence: None)
  Receive Date: 20050614
  Receipt Date: 20050602
  Transmission Date: 20051028
  Serious: Yes (Other)
  Sender: FDA-Public Use
  Company Number: US-JNJFOC-20050601617

PATIENT
  Sex: Female
  Weight: 73.48 kg

DRUGS (7)
  1. TOPAMAX [Suspect]
     Dosage: DOSE UNSPECIFIED
     Route: 049
  2. EFFEXOR [Interacting]
     Dosage: DOSE UNSPECIFED
     Route: 049
  3. LANSOPRAZOLE [Concomitant]
     Route: 049
     Dates: start: 20050301, end: 20050322
  4. ZYRTEC [Concomitant]
     Route: 049
  5. RHINOCORT [Concomitant]
     Route: 055
  6. LEVLEN 28 [Concomitant]
  7. LEVLEN 28 [Concomitant]

REACTIONS (2)
  - CONVULSION [None]
  - DRUG INTERACTION [None]
